FAERS Safety Report 13776824 (Version 3)
Quarter: 2023Q1

REPORT INFORMATION
  Report Type: Spontaneous
  Country: DE (occurrence: DE)
  Receive Date: 20170720
  Receipt Date: 20230206
  Transmission Date: 20230418
  Serious: Yes (Death)
  Sender: FDA-Public Use
  Company Number: GXKR2017DE003705

PATIENT
  Age: 46 Year
  Sex: Female
  Weight: 120 kg

DRUGS (5)
  1. ENALAPRIL MALEATE [Suspect]
     Active Substance: ENALAPRIL MALEATE
     Indication: Schizoaffective disorder
     Dosage: 5 MG, QD
     Route: 065
  2. TRIAMTERENE [Suspect]
     Active Substance: TRIAMTERENE
     Indication: Schizoaffective disorder
     Dosage: 50 MG, QD
     Route: 065
  3. HYDROCHLOROTHIAZIDE [Suspect]
     Active Substance: HYDROCHLOROTHIAZIDE
     Indication: Schizoaffective disorder
     Dosage: 25 MG, QD
     Route: 065
  4. BIPERIDEN [Suspect]
     Active Substance: BIPERIDEN
     Indication: Schizoaffective disorder
     Dosage: 4 MG, QD
     Route: 065
  5. ZUCLOPENTHIXOL ACETATE [Suspect]
     Active Substance: ZUCLOPENTHIXOL ACETATE
     Indication: Schizoaffective disorder
     Dosage: 500 MG, EVERY TWO WEEKS
     Route: 065

REACTIONS (3)
  - Ileus paralytic [Fatal]
  - Cardiac arrest [Fatal]
  - Respiratory failure [Unknown]
